FAERS Safety Report 7964145-1 (Version None)
Quarter: 2011Q4

REPORT INFORMATION
  Report Type: 
  Country: None (occurrence: None)
  Receive Date: 20111208
  Receipt Date: 20111125
  Transmission Date: 20120403
  Serious: Yes (Hospitalization)
  Sender: FDA-Public Use
  Company Number: JP-SANOFI-AVENTIS-2011SA062557

PATIENT
  Age: 79 Year
  Sex: Female
  Weight: 50.9 kg

DRUGS (15)
  1. PRAVASTATIN SODIUM [Concomitant]
     Route: 048
     Dates: end: 20100902
  2. ISOSORBIDE DINITRATE [Concomitant]
     Dosage: FORM:TAPE
     Route: 062
     Dates: start: 20100818, end: 20100907
  3. SELBEX [Concomitant]
     Indication: PROPHYLAXIS
     Route: 048
     Dates: start: 20110119, end: 20110330
  4. HEPARIN [Concomitant]
     Dosage: DOSE:10000 UNIT(S)
     Route: 042
     Dates: start: 20100907, end: 20100907
  5. ENALAPRIL MALEATE [Concomitant]
     Route: 048
     Dates: start: 20100908
  6. CLOPIDOGREL BISULFATE [Suspect]
     Dosage: MAINTAINANCE TREATMENT: THE 1ST DAY-2ND MONTH TREATMENT
     Route: 048
     Dates: start: 20100818, end: 20110709
  7. RABEPRAZOLE SODIUM [Concomitant]
     Indication: PROPHYLAXIS
     Route: 048
     Dates: start: 20110406
  8. ASPIRIN [Concomitant]
     Route: 048
     Dates: start: 20100818
  9. ALLOID [Concomitant]
     Indication: PROPHYLAXIS
     Route: 048
     Dates: start: 20110330
  10. ITAVASTATIN [Concomitant]
     Route: 048
     Dates: start: 20100903
  11. OMEPRAZOLE [Concomitant]
     Indication: PROPHYLAXIS
     Route: 048
     Dates: end: 20110309
  12. SIGMART [Concomitant]
     Route: 048
     Dates: start: 20100902, end: 20110309
  13. HEPARIN [Concomitant]
     Dosage: DOSE:2000 UNIT(S)
     Route: 042
     Dates: start: 20100903, end: 20100903
  14. AMLODIPINE [Concomitant]
     Route: 048
  15. AMINOLEBAN EN [Concomitant]
     Route: 048
     Dates: start: 20110224

REACTIONS (7)
  - GAMMA-GLUTAMYLTRANSFERASE INCREASED [None]
  - BLOOD BILIRUBIN INCREASED [None]
  - HEPATIC ENCEPHALOPATHY [None]
  - HEPATIC ENZYME INCREASED [None]
  - ALANINE AMINOTRANSFERASE INCREASED [None]
  - ASPARTATE AMINOTRANSFERASE INCREASED [None]
  - DEPRESSED LEVEL OF CONSCIOUSNESS [None]
